FAERS Safety Report 9609582 (Version 2)
Quarter: 2013Q4

REPORT INFORMATION
  Report Type: Spontaneous
  Country: US (occurrence: US)
  Receive Date: 20131009
  Receipt Date: 20131009
  Transmission Date: 20140711
  Serious: No
  Sender: FDA-Public Use
  Company Number: US-PURDUE-USA-2012-0094956

PATIENT
  Age: 71 Year
  Sex: Male

DRUGS (1)
  1. BUTRANS [Suspect]
     Indication: PAIN
     Dosage: 10 MCG, 1/WEEK
     Route: 062
     Dates: start: 20121022, end: 20121022

REACTIONS (5)
  - Hypersensitivity [Recovered/Resolved]
  - Application site rash [Not Recovered/Not Resolved]
  - Paraesthesia oral [Unknown]
  - Hypoaesthesia oral [Unknown]
  - Lip swelling [Unknown]
